FAERS Safety Report 12961811 (Version 2)
Quarter: 2016Q4

REPORT INFORMATION
  Report Type: Report from Study
  Country: BE (occurrence: BE)
  Receive Date: 20161121
  Receipt Date: 20161201
  Transmission Date: 20170207
  Serious: No
  Sender: FDA-Public Use
  Company Number: BE-JNJFOC-20161120310

PATIENT

DRUGS (10)
  1. REMICADE [Suspect]
     Active Substance: INFLIXIMAB
     Indication: COLITIS ULCERATIVE
     Route: 042
     Dates: start: 20151218
  2. REMICADE [Suspect]
     Active Substance: INFLIXIMAB
     Indication: COLITIS ULCERATIVE
     Route: 042
     Dates: start: 20151022
  3. METHOTREXATE. [Concomitant]
     Active Substance: METHOTREXATE
     Dosage: PAST 6 MONTHS
     Route: 065
     Dates: start: 2016
  4. REMICADE [Suspect]
     Active Substance: INFLIXIMAB
     Indication: COLITIS ULCERATIVE
     Route: 042
     Dates: start: 20100521
  5. AZATHIOPRINE. [Concomitant]
     Active Substance: AZATHIOPRINE
     Dosage: PAST 6 MONTHS
     Route: 065
     Dates: start: 2016
  6. PURINETHOL [Concomitant]
     Active Substance: MERCAPTOPURINE
     Dosage: SINCE FIRST DIAGNOSIS
     Route: 065
  7. MEDROL [Concomitant]
     Active Substance: METHYLPREDNISOLONE
     Dosage: PAST 6 MONTHS
     Route: 065
     Dates: start: 2016
  8. SULFASALAZINE. [Concomitant]
     Active Substance: SULFASALAZINE
     Dosage: SINCE FIRST DIAGNOSIS
     Route: 065
  9. CYCLOSPORINE. [Concomitant]
     Active Substance: CYCLOSPORINE
     Dosage: SINCE FIRST DIAGNOSIS
     Route: 065
  10. 6-MP [Concomitant]
     Active Substance: MERCAPTOPURINE
     Dosage: SINCE FIRST DIAGNOSIS
     Route: 065

REACTIONS (1)
  - Colitis ulcerative [Recovered/Resolved]

NARRATIVE: CASE EVENT DATE: 20100820
